FAERS Safety Report 7048529-4 (Version None)
Quarter: 2010Q4

REPORT INFORMATION
  Report Type: 
  Country: None (occurrence: None)
  Receive Date: 20101008
  Receipt Date: 20100924
  Transmission Date: 20110411
  Serious: Yes (Hospitalization)
  Sender: FDA-Public Use
  Company Number: 2010MA003262

PATIENT
  Age: 69 Year
  Sex: Female

DRUGS (5)
  1. EPIRUBICIN HYDROCHLORIDE [Suspect]
     Indication: CHEMOTHERAPY
     Dosage: 110 MG;
     Dates: start: 20100825, end: 20100825
  2. EXEMESTANE [Suspect]
     Indication: BREAST CANCER METASTATIC
     Dosage: 25 MG;
     Dates: start: 20100519, end: 20100818
  3. AFINITOR [Suspect]
     Indication: BREAST CANCER METASTATIC
     Dates: start: 20100519, end: 20100818
  4. COMP-PLA (NO PREF. NAME) [Suspect]
     Indication: BREAST CANCER METASTATIC
     Dates: start: 20100519, end: 20100818
  5. NOMED (NO PREF. NAME) [Suspect]
     Indication: BREAST CANCER METASTATIC
     Dates: start: 20100519, end: 20100818

REACTIONS (5)
  - DEHYDRATION [None]
  - DYSPNOEA [None]
  - PAIN [None]
  - SYNCOPE [None]
  - VOMITING [None]
